FAERS Safety Report 7043821-1 (Version None)
Quarter: 2010Q4

REPORT INFORMATION
  Report Type: 
  Country: None (occurrence: None)
  Receive Date: 20101008
  Receipt Date: 20101008
  Transmission Date: 20110411
  Serious: Yes (Hospitalization)
  Sender: FDA-Public Use
  Company Number: None

PATIENT
  Age: 7 Year
  Sex: Male
  Weight: 34.6 kg

DRUGS (2)
  1. CEFTRIAXON [Suspect]
     Indication: SEPSIS
     Dosage: 1700 MG ONCE IV
     Route: 042
     Dates: start: 20100923
  2. STERILE WATER [Suspect]
     Indication: SEPSIS
     Dosage: 42.5 ML STERILE WATER ONCE IV
     Route: 042
     Dates: start: 20100923

REACTIONS (3)
  - CHILLS [None]
  - CRYING [None]
  - FEELING ABNORMAL [None]
